FAERS Safety Report 23853918 (Version 1)
Quarter: 2024Q2

REPORT INFORMATION
  Report Type: Report from Study
  Country: US (occurrence: US)
  Receive Date: 20240514
  Receipt Date: 20240514
  Transmission Date: 20240716
  Serious: Yes (Hospitalization)
  Sender: FDA-Public Use
  Company Number: US-Eisai-EC-2024-165723

PATIENT
  Age: 59 Year
  Sex: Male
  Weight: 70.57 kg

DRUGS (4)
  1. LENVIMA [Suspect]
     Active Substance: LENVATINIB
     Indication: Renal cancer
     Route: 048
     Dates: start: 202210, end: 20230119
  2. LENVIMA [Suspect]
     Active Substance: LENVATINIB
     Dosage: SUSPENDED FOR 2 WEEKS
     Route: 048
     Dates: start: 2023, end: 2023
  3. LENVIMA [Suspect]
     Active Substance: LENVATINIB
     Dosage: ON HOLD UNTIL AFTER SURGERY
     Route: 048
     Dates: start: 2023, end: 2023
  4. LENVIMA [Suspect]
     Active Substance: LENVATINIB
     Route: 048
     Dates: start: 20240216, end: 20240424

REACTIONS (1)
  - Biliary tract disorder [Unknown]

NARRATIVE: CASE EVENT DATE: 20240401
